FAERS Safety Report 9356272 (Version 1)
Quarter: 2013Q2

REPORT INFORMATION
  Report Type: Spontaneous
  Country: DZ (occurrence: DZ)
  Receive Date: 20130619
  Receipt Date: 20130619
  Transmission Date: 20140414
  Serious: Yes (Other)
  Sender: FDA-Public Use
  Company Number: DZ-JNJFOC-20130606930

PATIENT
  Age: 76 Year
  Sex: Male

DRUGS (1)
  1. ZYTIGA [Suspect]
     Indication: PRODUCT USED FOR UNKNOWN INDICATION
     Route: 048

REACTIONS (5)
  - Cardiac disorder [Unknown]
  - Renal failure [Unknown]
  - Hypokalaemia [Unknown]
  - Vomiting [Unknown]
  - Dyspnoea [Unknown]
